FAERS Safety Report 9705757 (Version 1)
Quarter: 2013Q4

REPORT INFORMATION
  Report Type: Spontaneous
  Country: US (occurrence: US)
  Receive Date: 20131122
  Receipt Date: 20131122
  Transmission Date: 20140711
  Serious: No
  Sender: FDA-Public Use
  Company Number: US-GILEAD-2008-0017995

PATIENT
  Sex: Male
  Weight: 41.28 kg

DRUGS (5)
  1. LETAIRIS [Suspect]
     Indication: PULMONARY ARTERIAL HYPERTENSION
     Route: 048
     Dates: start: 20080822
  2. ASPIRIN [Concomitant]
     Route: 048
  3. LASIX [Concomitant]
     Route: 048
  4. NORVASC [Concomitant]
     Route: 048
  5. REVATIO [Concomitant]
     Route: 048

REACTIONS (1)
  - Local swelling [None]
